FAERS Safety Report 5749097-7 (Version None)
Quarter: 2008Q2

REPORT INFORMATION
  Report Type: 
  Country: None (occurrence: None)
  Receive Date: 20080522
  Receipt Date: 20080515
  Transmission Date: 20081010
  Serious: Yes (Death)
  Sender: FDA-Public Use
  Company Number: 2008JP001321

PATIENT
  Sex: Female
  Weight: 26 kg

DRUGS (3)
  1. VESICARE [Suspect]
     Indication: HYPERTONIC BLADDER
     Dosage: 5 MG, UID/QD, ORAL
     Route: 048
     Dates: start: 20070615, end: 20080110
  2. NORVASC [Concomitant]
  3. LISINOPRIL [Concomitant]

REACTIONS (4)
  - DECREASED ACTIVITY [None]
  - DECREASED APPETITE [None]
  - MARASMUS [None]
  - RENAL IMPAIRMENT [None]
